FAERS Safety Report 7254426-1 (Version None)
Quarter: 2011Q1

REPORT INFORMATION
  Report Type: 
  Country: None (occurrence: None)
  Receive Date: 20110129
  Receipt Date: 20100407
  Transmission Date: 20110831
  Serious: No
  Sender: FDA-Public Use
  Company Number: US-ABBOTT-10P-163-0638376-00

PATIENT
  Age: 66 Year
  Sex: Female

DRUGS (6)
  1. ENTOCORT EC [Concomitant]
  2. DECLINE LONG LIST OF MEDICATION [Concomitant]
     Indication: PRODUCT USED FOR UNKNOWN INDICATION
  3. HUMIRA [Suspect]
     Indication: CROHN'S DISEASE
     Dates: start: 20100325
  4. ENTOCORT EC [Suspect]
     Indication: PRODUCT USED FOR UNKNOWN INDICATION
  5. GABAPENTIN [Concomitant]
  6. GABAPENTIN [Suspect]
     Indication: PRODUCT USED FOR UNKNOWN INDICATION
     Route: 048

REACTIONS (7)
  - OEDEMA [None]
  - DYSPNOEA [None]
  - DIARRHOEA [None]
  - SOMNOLENCE [None]
  - CHILLS [None]
  - ABDOMINAL PAIN [None]
  - OEDEMA PERIPHERAL [None]
